FAERS Safety Report 14781796 (Version 1)
Quarter: 2018Q2

REPORT INFORMATION
  Report Type: Report from Study
  Country: PL (occurrence: PL)
  Receive Date: 20180420
  Receipt Date: 20180420
  Transmission Date: 20180711
  Serious: Yes (Other)
  Sender: FDA-Public Use
  Company Number: PL-ROCHE-2110144

PATIENT

DRUGS (4)
  1. PEG-INTERFERON ALFA 2A [Suspect]
     Active Substance: PEGINTERFERON ALFA-2A
     Indication: HEPATITIS C
     Route: 042
  2. RIBAVIRIN. [Suspect]
     Active Substance: RIBAVIRIN
     Indication: HEPATITIS C
     Dosage: 1000 MG FOR { 75 KG, 1200 MG FOR }/= 75 KG
     Route: 048
  3. PEGINTERFERON ALFA-2B [Suspect]
     Active Substance: PEGINTERFERON ALFA-2B
     Indication: HEPATITIS C
     Route: 058
  4. RIBAVIRIN. [Suspect]
     Active Substance: RIBAVIRIN
     Indication: HEPATITIS C
     Dosage: 800 MG FOR { 65 KG, 1000 MG FOR 65-85 KG, 1200 MG FOR } 85 KG
     Route: 048

REACTIONS (26)
  - Urinary tract infection [Unknown]
  - Oligomenorrhoea [Unknown]
  - Anaemia [Unknown]
  - Weight decreased [Unknown]
  - Decreased appetite [Unknown]
  - Thrombocytopenia [Unknown]
  - Appendicitis [Unknown]
  - Fatigue [Unknown]
  - Influenza like illness [Unknown]
  - Irritability [Unknown]
  - Neutrophil count decreased [Unknown]
  - Hyperthyroidism [Unknown]
  - Hypothyroidism [Unknown]
  - Drug ineffective [Unknown]
  - Oral herpes [Unknown]
  - Depression [Unknown]
  - Insomnia [Unknown]
  - Cough [Unknown]
  - Chronic inflammatory demyelinating polyradiculoneuropathy [Unknown]
  - Anxiety [Unknown]
  - Pruritus [Unknown]
  - Alopecia [Unknown]
  - Respiratory tract infection bacterial [Unknown]
  - Thyroiditis [Unknown]
  - Haemorrhage [Unknown]
  - Rash [Unknown]
